FAERS Safety Report 7756488 (Version 2)
Quarter: 2013Q1

REPORT INFORMATION
  Report Type: Spontaneous
  Country: US (occurrence: None)
  Receive Date: 20101217
  Receipt Date: 20121106
  Transmission Date: 20140127
  Serious: Yes (Other)
  Sender: FDA-Public Use
  Company Number: 2010MA005187

PATIENT
  Sex: Female
  Weight: 108.86 kg

DRUGS (40)
  1. METOCLOPRAMIDE [Suspect]
     Indication: NAUSEA
     Route: 048
     Dates: start: 20090711, end: 20091029
  2. METOCLOPRAMIDE [Suspect]
     Indication: GASTRIC BYPASS
     Route: 048
     Dates: start: 20090711, end: 20091029
  3. XANAX [Concomitant]
  4. AMBIEN CR [Concomitant]
  5. AMITRIPTYLINE [Concomitant]
  6. AZITHROMYCIN [Concomitant]
  7. BACLOFEN [Concomitant]
  8. BENZONATATE [Concomitant]
  9. CALCITONIN-SALMON [Concomitant]
  10. CATAPRES-TTS [Concomitant]
  11. CEPHALEXIN [Concomitant]
  12. ZYRTEC [Concomitant]
  13. CLONAZEPAM [Concomitant]
  14. PROCHLORPERAZINE SUPPOSITORY [Concomitant]
  15. CYMBALTA [Concomitant]
  16. VALIUM [Concomitant]
  17. FAMOTIDINE [Concomitant]
  18. FEXOFENADINE [Concomitant]
  19. FLECTOR [Concomitant]
  20. FLUOXETINE [Concomitant]
  21. HYDROCODONE W/ACETAMINOPHEN [Concomitant]
  22. LEVAQUIN [Concomitant]
  23. LEVOXYL [Concomitant]
  24. LIMBREL [Concomitant]
  25. LUNESTA [Concomitant]
  26. MECLIZINE [Concomitant]
  27. MIRAPAK [Concomitant]
  28. MORPHINE SULFATE [Concomitant]
  29. OXYCODONE/APAP [Concomitant]
  30. DARVOCET-N 100 [Concomitant]
  31. PROPRANOLOL [Concomitant]
  32. PANTOPRAZOLE [Concomitant]
  33. RELPAX [Concomitant]
  34. REQUIP [Concomitant]
  35. SKELAXIN [Concomitant]
  36. SOMA [Concomitant]
  37. ZANAFLEX [Concomitant]
  38. TRAZODONE [Concomitant]
  39. VITAMIN D [Concomitant]
  40. ZONEGRAN [Concomitant]

REACTIONS (4)
  - Extrapyramidal disorder [None]
  - Tremor [None]
  - Emotional disorder [None]
  - Economic problem [None]
